FAERS Safety Report 17843014 (Version 1)
Quarter: 2020Q2

REPORT INFORMATION
  Report Type: Spontaneous
  Country: US (occurrence: US)
  Receive Date: 20200530
  Receipt Date: 20200530
  Transmission Date: 20200714
  Serious: No
  Sender: FDA-Public Use
  Company Number: NVSC2020US150257

PATIENT
  Age: 25 Year
  Sex: Male

DRUGS (1)
  1. SIGNIFOR LAR [Suspect]
     Active Substance: PASIREOTIDE PAMOATE
     Indication: GIGANTISM
     Dosage: 60 MG(EVERY 28 DAYS)
     Route: 065
     Dates: start: 20170501

REACTIONS (1)
  - Headache [Unknown]
